FAERS Safety Report 25949039 (Version 1)
Quarter: 2025Q4

REPORT INFORMATION
  Report Type: Spontaneous
  Country: US (occurrence: None)
  Receive Date: 20251022
  Receipt Date: 20251022
  Transmission Date: 20260118
  Serious: Yes (Disabling, Other)
  Sender: FDA-CTU
  Company Number: None

PATIENT
  Age: 30 Year
  Sex: Male
  Weight: 56.25 kg

DRUGS (3)
  1. ABILIFY [Suspect]
     Active Substance: ARIPIPRAZOLE
     Indication: Schizophrenia
     Dates: start: 20240118, end: 20240828
  2. VITAMINS [Concomitant]
     Active Substance: VITAMINS
  3. COBENFY [Concomitant]
     Active Substance: TROSPIUM CHLORIDE\XANOMELINE

REACTIONS (5)
  - Compulsive shopping [None]
  - Gambling [None]
  - Emotional distress [None]
  - Behaviour disorder [None]
  - Socioeconomic precarity [None]

NARRATIVE: CASE EVENT DATE: 20250118
